FAERS Safety Report 18516893 (Version 1)
Quarter: 2020Q4

REPORT INFORMATION
  Report Type: Spontaneous
  Country: US (occurrence: US)
  Receive Date: 20201118
  Receipt Date: 20201118
  Transmission Date: 20210114
  Serious: Yes (Disabling)
  Sender: FDA-Public Use
  Company Number: None

PATIENT
  Age: 66 Year
  Sex: Female
  Weight: 100.35 kg

DRUGS (4)
  1. FLUPHENAZINE [Suspect]
     Active Substance: FLUPHENAZINE
     Indication: SCHIZOAFFECTIVE DISORDER
  2. LISINOPRIL. [Concomitant]
     Active Substance: LISINOPRIL
  3. FLUPHENANAZINE [Concomitant]
  4. VITAMIN D3 [Concomitant]
     Active Substance: CHOLECALCIFEROL

REACTIONS (4)
  - Infection [None]
  - Blood pressure increased [None]
  - Incoherent [None]
  - Pain in extremity [None]

NARRATIVE: CASE EVENT DATE: 20200823
